FAERS Safety Report 26049256 (Version 2)
Quarter: 2025Q4

REPORT INFORMATION
  Report Type: Report from Study
  Country: EU (occurrence: EU)
  Receive Date: 20251115
  Receipt Date: 20251202
  Transmission Date: 20260118
  Serious: Yes (Death, Life-Threatening, Other)
  Sender: TAKEDA
  Company Number: EU-TAKEDA-2025TUS101244

PATIENT
  Sex: Male
  Weight: 59.2 kg

DRUGS (24)
  1. MARIBAVIR [Suspect]
     Active Substance: MARIBAVIR
     Indication: Cytomegalovirus infection
     Dosage: UNK
     Dates: start: 20250908, end: 20251001
  2. MARIBAVIR [Suspect]
     Active Substance: MARIBAVIR
     Dosage: 400 MILLIGRAM, BID
     Dates: start: 20250908, end: 20251001
  3. ACYCLOVIR [Concomitant]
     Active Substance: ACYCLOVIR
     Indication: Infection prophylaxis
     Dosage: 800 MILLIGRAM, BID
     Dates: start: 2024, end: 20251001
  4. ACYCLOVIR [Concomitant]
     Active Substance: ACYCLOVIR
     Dosage: 250 MILLIGRAM, BID
     Dates: start: 20250926, end: 20251001
  5. BISOPROLOL [Concomitant]
     Active Substance: BISOPROLOL
     Indication: Aortic valve replacement
     Dosage: 2.5 MILLIGRAM, QD
     Dates: start: 2016, end: 20251001
  6. CALCIUM CARBONATE [Concomitant]
     Active Substance: CALCIUM CARBONATE
     Indication: Osteoporosis
     Dosage: 1 GRAM
  7. DEFERASIROX [Concomitant]
     Active Substance: DEFERASIROX
     Indication: Iron overload
     Dosage: 360 MILLIGRAM, BID
     Dates: start: 202504, end: 20251001
  8. SULFAMETHOXAZOLE\TRIMETHOPRIM [Concomitant]
     Active Substance: SULFAMETHOXAZOLE\TRIMETHOPRIM
     Indication: Infection prophylaxis
     Dosage: UNK
  9. MIRTAZAPINE [Concomitant]
     Active Substance: MIRTAZAPINE
     Indication: Antidepressant therapy
     Dosage: 30 MILLIGRAM, QD
     Dates: start: 20250910, end: 20250910
  10. Pantomed [Concomitant]
     Indication: Prophylaxis
     Dosage: 40 MILLIGRAM, QD
     Dates: start: 2024, end: 20251001
  11. POSACONAZOLE [Concomitant]
     Active Substance: POSACONAZOLE
     Indication: Infection prophylaxis
     Dosage: 100 MILLIGRAM
     Dates: start: 20250822, end: 20250929
  12. URSODIOL [Concomitant]
     Active Substance: URSODIOL
     Indication: Hepatitis
     Dosage: 250 MILLIGRAM, QID
     Dates: start: 20250826, end: 20250923
  13. Aminomix [Concomitant]
     Indication: Decreased appetite
     Dosage: 1000 MILLILITER, QD
     Dates: start: 20250827, end: 20250929
  14. ELECTROLYTES NOS\MINERALS [Concomitant]
     Active Substance: ELECTROLYTES NOS\MINERALS
     Indication: Decreased appetite
     Dosage: UNK, QD
     Dates: start: 20250827, end: 20250929
  15. ERGOCALCIFEROL\PHYTONADIONE\RETINOL\TOCOPHEROL [Concomitant]
     Active Substance: ERGOCALCIFEROL\PHYTONADIONE\RETINOL\TOCOPHEROL
     Indication: Decreased appetite
     Dosage: UNK, QD
     Dates: start: 20250827, end: 20250929
  16. VITAMINS [Concomitant]
     Active Substance: VITAMINS
     Indication: Decreased appetite
     Dosage: UNK, QD
     Dates: start: 20250827, end: 20250929
  17. BUMETANIDE [Concomitant]
     Active Substance: BUMETANIDE
     Indication: Oedema peripheral
     Dosage: 2 MILLIGRAM, QD
     Dates: start: 20250924, end: 20250928
  18. INFLIXIMAB [Concomitant]
     Active Substance: INFLIXIMAB
     Dosage: 650 MILLIGRAM, 1/WEEK
     Dates: start: 20250922
  19. PRIVIGEN [Concomitant]
     Active Substance: HUMAN IMMUNOGLOBULIN G
     Indication: Hypogammaglobulinaemia
     Dosage: 30 GRAM, 1/WEEK
     Dates: start: 20250902, end: 20251001
  20. BECLOMETHASONE DIPROPIONATE\FORMOTEROL FUMARATE\GLYCOPYRROLATE [Concomitant]
     Active Substance: BECLOMETHASONE DIPROPIONATE\FORMOTEROL FUMARATE\GLYCOPYRROLATE
     Indication: Chronic obstructive pulmonary disease
     Dosage: UNK
  21. FILGRASTIM [Concomitant]
     Active Substance: FILGRASTIM
     Indication: Neutropenia
     Dosage: 300 MICROGRAM, QD
     Dates: start: 20250908, end: 20251001
  22. NPLATE [Concomitant]
     Active Substance: ROMIPLOSTIM
     Indication: Thrombocytopenia
     Dosage: 500 MICROGRAM, 1/WEEK
     Dates: start: 20250902, end: 20251001
  23. LANTUS [Concomitant]
     Active Substance: INSULIN GLARGINE
     Indication: Steroid diabetes
     Dosage: 20 INTERNATIONAL UNIT, QD
     Dates: start: 20250829, end: 20251001
  24. LORMETAZEPAM [Concomitant]
     Active Substance: LORMETAZEPAM
     Indication: Insomnia
     Dosage: 1 MILLIGRAM, QD
     Dates: start: 2024, end: 20250901

REACTIONS (5)
  - Graft versus host disease [Fatal]
  - Diarrhoea haemorrhagic [Fatal]
  - Viraemia [Fatal]
  - Sepsis [Fatal]
  - Drug ineffective [Unknown]

NARRATIVE: CASE EVENT DATE: 20250921
